FAERS Safety Report 11142201 (Version 1)
Quarter: 2015Q2

REPORT INFORMATION
  Report Type: Spontaneous
  Country: US (occurrence: None)
  Receive Date: 20150526
  Receipt Date: 20150526
  Transmission Date: 20150821
  Serious: Yes (Other)
  Sender: FDA-Public Use
  Company Number: None

PATIENT
  Age: 33 Year
  Sex: Female
  Weight: 79.38 kg

DRUGS (1)
  1. CEFTRIAXONE. [Suspect]
     Active Substance: CEFTRIAXONE
     Indication: GONORRHOEA
     Dates: start: 20150521, end: 20150521

REACTIONS (15)
  - Chest pain [None]
  - Chest discomfort [None]
  - Pain in extremity [None]
  - Throat tightness [None]
  - Speech disorder [None]
  - Dizziness [None]
  - Eye haemorrhage [None]
  - Myalgia [None]
  - Musculoskeletal stiffness [None]
  - Dyspnoea [None]
  - Musculoskeletal chest pain [None]
  - Body temperature decreased [None]
  - Nausea [None]
  - Blood pressure increased [None]
  - Mental impairment [None]

NARRATIVE: CASE EVENT DATE: 20150521
